FAERS Safety Report 20002641 (Version 3)
Quarter: 2021Q4

REPORT INFORMATION
  Report Type: Spontaneous
  Country: US (occurrence: US)
  Receive Date: 20211027
  Receipt Date: 20211203
  Transmission Date: 20220303
  Serious: No
  Sender: FDA-Public Use
  Company Number: US-BOEHRINGERINGELHEIM-2021-BI-134401

PATIENT
  Sex: Male

DRUGS (1)
  1. COMBIVENT [Suspect]
     Active Substance: ALBUTEROL SULFATE\IPRATROPIUM BROMIDE
     Indication: Product used for unknown indication
     Dosage: UP TO 6 SPRAYS DAILY, SOMETIMES MORE
     Route: 065

REACTIONS (3)
  - Postoperative adhesion [Recovered/Resolved]
  - Intentional overdose [Unknown]
  - Product quality issue [Unknown]
